FAERS Safety Report 9566271 (Version 1)
Quarter: 2013Q3

REPORT INFORMATION
  Report Type: Spontaneous
  Country: BR (occurrence: BR)
  Receive Date: 20130930
  Receipt Date: 20130930
  Transmission Date: 20140515
  Serious: Yes (Hospitalization, Other)
  Sender: FDA-Public Use
  Company Number: BR-009507513-1309BRA012923

PATIENT
  Age: 64 Year
  Sex: Male

DRUGS (1)
  1. SIMVASTATIN [Suspect]
     Indication: BLOOD CHOLESTEROL INCREASED
     Dosage: UNK, UNKNOWN
     Route: 048

REACTIONS (8)
  - Myocardial infarction [Unknown]
  - Venous occlusion [Unknown]
  - Venous occlusion [Unknown]
  - Vascular graft [Unknown]
  - Chest pain [Unknown]
  - Device occlusion [Unknown]
  - Arterial occlusive disease [Unknown]
  - Stent placement [Unknown]
